FAERS Safety Report 9773063 (Version 1)
Quarter: 2013Q4

REPORT INFORMATION
  Report Type: Report from Study
  Country: DE (occurrence: AR)
  Receive Date: 20131219
  Receipt Date: 20131219
  Transmission Date: 20140711
  Serious: Yes (Death, Hospitalization)
  Sender: FDA-Public Use
  Company Number: DE-ACTELION-A-NJ2013-92643

PATIENT
  Age: 31 Year
  Sex: Female

DRUGS (1)
  1. VENTAVIS [Suspect]
     Indication: PULMONARY HYPERTENSION
     Dosage: 5 MCG/DL
     Route: 055

REACTIONS (4)
  - Cardio-respiratory arrest [Fatal]
  - Dyspnoea [Not Recovered/Not Resolved]
  - Abdominal pain [Recovered/Resolved]
  - Cardiac failure congestive [Unknown]
